FAERS Safety Report 9928865 (Version 3)
Quarter: 2014Q2

REPORT INFORMATION
  Report Type: Spontaneous
  Country: US (occurrence: US)
  Receive Date: 20140227
  Receipt Date: 20140501
  Transmission Date: 20141212
  Serious: Yes (Other)
  Sender: FDA-Public Use
  Company Number: US-PURDUE-USA-2014-0111593

PATIENT
  Sex: Female
  Weight: 74.83 kg

DRUGS (3)
  1. OXYCONTIN (NDA 22-272) [Suspect]
     Indication: PAIN
     Dosage: 60 MG, BID
     Route: 048
     Dates: start: 20120605
  2. OXYCONTIN (NDA 22-272) [Suspect]
     Indication: CROHN^S DISEASE
  3. DEPO-PROVERA [Suspect]
     Indication: CONTRACEPTION
     Dosage: UNKNOWN
     Route: 058

REACTIONS (12)
  - Tooth fracture [Not Recovered/Not Resolved]
  - Weight increased [Not Recovered/Not Resolved]
  - Loss of consciousness [Recovered/Resolved]
  - Dental caries [Not Recovered/Not Resolved]
  - Crohn^s disease [Unknown]
  - Hot flush [Unknown]
  - Back disorder [Unknown]
  - Musculoskeletal disorder [Unknown]
  - Drug tolerance [Unknown]
  - Dizziness [Recovered/Resolved]
  - Headache [Not Recovered/Not Resolved]
  - Maternal exposure during pregnancy [Unknown]
